FAERS Safety Report 7037046-3 (Version None)
Quarter: 2010Q4

REPORT INFORMATION
  Report Type: 
  Country: None (occurrence: None)
  Receive Date: 20101011
  Receipt Date: 20100928
  Transmission Date: 20110411
  Serious: Yes (Hospitalization)
  Sender: FDA-Public Use
  Company Number: US-ACTELION-A-NJ2010-40426

PATIENT
  Sex: Female

DRUGS (8)
  1. TRACLEER [Suspect]
     Indication: PULMONARY ARTERIAL HYPERTENSION
     Dosage: 62.5 MG, BID
     Route: 048
     Dates: start: 20100115
  2. DARVOCET-N 100 [Concomitant]
  3. LASIX [Concomitant]
  4. ASPIRIN [Concomitant]
  5. INSULIN HUMAN [Concomitant]
  6. LIMBITROL [Concomitant]
  7. NOVOLOG [Concomitant]
  8. PLAVIX [Concomitant]

REACTIONS (1)
  - BALANCE DISORDER [None]
